FAERS Safety Report 10111606 (Version 1)
Quarter: 2014Q2

REPORT INFORMATION
  Report Type: Report from Study
  Country: IT (occurrence: IT)
  Receive Date: 20140425
  Receipt Date: 20140425
  Transmission Date: 20141212
  Serious: Yes (Hospitalization)
  Sender: FDA-Public Use
  Company Number: IT-ASTRAZENECA-2014SE26811

PATIENT
  Age: 26976 Day
  Sex: Female

DRUGS (5)
  1. ARIMIDEX [Suspect]
     Indication: BREAST CANCER FEMALE
     Route: 048
     Dates: start: 20090406
  2. AMLODIPINE [Concomitant]
  3. BISOPROLOLE [Concomitant]
  4. GLICOSIDE [Concomitant]
  5. METFORMINE [Concomitant]

REACTIONS (1)
  - Renal artery thrombosis [Not Recovered/Not Resolved]
